FAERS Safety Report 10216097 (Version 2)
Quarter: 2014Q2

REPORT INFORMATION
  Report Type: Spontaneous
  Country: EE (occurrence: EE)
  Receive Date: 20140604
  Receipt Date: 20140609
  Transmission Date: 20141212
  Serious: Yes (Life-Threatening, Hospitalization)
  Sender: FDA-Public Use
  Company Number: EE-ROCHE-1412829

PATIENT
  Sex: Female
  Weight: 100 kg

DRUGS (5)
  1. MABTHERA [Suspect]
     Indication: RHEUMATOID ARTHRITIS
     Route: 042
     Dates: start: 20140107, end: 20140121
  2. SYMBICORT [Concomitant]
     Indication: ASTHMA
  3. MICARDIS [Concomitant]
     Indication: HYPERTENSION
  4. ARCOXIA [Concomitant]
  5. FOLIC ACID [Concomitant]

REACTIONS (1)
  - Breast cancer [Recovering/Resolving]
